FAERS Safety Report 13094826 (Version 1)
Quarter: 2017Q1

REPORT INFORMATION
  Report Type: Spontaneous
  Country: US (occurrence: US)
  Receive Date: 20170106
  Receipt Date: 20170106
  Transmission Date: 20170428
  Serious: No
  Sender: FDA-Public Use
  Company Number: US-SHIRE-US201700048

PATIENT
  Sex: Male

DRUGS (2)
  1. PENTASA [Suspect]
     Active Substance: MESALAMINE
     Dosage: 2 DF, 1X/DAY:QD
     Route: 048
  2. PENTASA [Suspect]
     Active Substance: MESALAMINE
     Indication: PRODUCT USED FOR UNKNOWN INDICATION
     Dosage: 1 DF, 1X/DAY:QD
     Route: 048

REACTIONS (5)
  - Inappropriate schedule of drug administration [Unknown]
  - Crying [Unknown]
  - Intentional underdose [Unknown]
  - Incorrect product storage [Unknown]
  - Abdominal pain upper [Unknown]
